FAERS Safety Report 21997914 (Version 3)
Quarter: 2023Q2

REPORT INFORMATION
  Report Type: Spontaneous
  Country: US (occurrence: None)
  Receive Date: 20230216
  Receipt Date: 20230428
  Transmission Date: 20230721
  Serious: No
  Sender: FDA-Public Use
  Company Number: 2023A034988

PATIENT
  Age: 65 Year
  Sex: Male
  Weight: 108.9 kg

DRUGS (2)
  1. BYDUREON BCISE [Suspect]
     Active Substance: EXENATIDE
     Indication: Type 2 diabetes mellitus
     Dosage: 2 MG SUBCUTANEOUSLY ONCE A WEEK
     Route: 058
  2. FARXIGA [Suspect]
     Active Substance: DAPAGLIFLOZIN PROPANEDIOL
     Route: 048

REACTIONS (6)
  - Weight decreased [Unknown]
  - Injection site injury [Unknown]
  - Injection site pain [Unknown]
  - Product communication issue [Unknown]
  - Product physical consistency issue [Unknown]
  - Device issue [Unknown]
